FAERS Safety Report 8283087-8 (Version None)
Quarter: 2012Q2

REPORT INFORMATION
  Report Type: 
  Country: None (occurrence: None)
  Receive Date: 20120413
  Receipt Date: 20120403
  Transmission Date: 20120825
  Serious: Yes (Disabling, Other)
  Sender: FDA-Public Use
  Company Number: DE-FRI-1000029726

PATIENT
  Age: 64 Year
  Sex: Male
  Weight: 67 kg

DRUGS (4)
  1. SALBULAIR [Concomitant]
     Indication: CONDITION AGGRAVATED
     Dates: start: 20040101
  2. ROFLUMILAST [Suspect]
     Indication: CHRONIC OBSTRUCTIVE PULMONARY DISEASE
     Dosage: 500 MCG
     Route: 048
     Dates: start: 20110610, end: 20111209
  3. PREDNISOLONE [Concomitant]
     Indication: CONDITION AGGRAVATED
     Dates: start: 20040101
  4. ABSOMOL [Concomitant]
     Indication: CONDITION AGGRAVATED
     Dates: start: 20040101

REACTIONS (2)
  - CONDITION AGGRAVATED [None]
  - SPIROMETRY ABNORMAL [None]
